FAERS Safety Report 9310410 (Version 1)
Quarter: 2013Q2

REPORT INFORMATION
  Report Type: Spontaneous
  Country: JP (occurrence: JP)
  Receive Date: 20130527
  Receipt Date: 20130527
  Transmission Date: 20140414
  Serious: Yes (Other)
  Sender: FDA-Public Use
  Company Number: PHHY2013JP052537

PATIENT
  Age: 53 Year
  Sex: Female

DRUGS (1)
  1. ZOLEDRONIC ACID [Suspect]
     Indication: METASTASES TO BONE
     Dosage: UNK
     Route: 041

REACTIONS (5)
  - Osteonecrosis of jaw [Unknown]
  - Pain in jaw [Unknown]
  - Trismus [Unknown]
  - Oropharyngeal pain [Unknown]
  - Exposed bone in jaw [Unknown]
